FAERS Safety Report 11831322 (Version 1)
Quarter: 2015Q4

REPORT INFORMATION
  Report Type: Spontaneous
  Country: IT (occurrence: IT)
  Receive Date: 20151214
  Receipt Date: 20151214
  Transmission Date: 20160305
  Serious: Yes (Other)
  Sender: FDA-Public Use
  Company Number: IT-WATSON-2015-26734

PATIENT
  Age: 83 Year
  Sex: Male

DRUGS (1)
  1. RIVASTIGMINE ACTAVIS [Suspect]
     Active Substance: RIVASTIGMINE
     Indication: SENILE DEMENTIA
     Dosage: 3 MG, DAILY
     Route: 048
     Dates: start: 20151022, end: 20151025

REACTIONS (1)
  - Blood pressure increased [Unknown]

NARRATIVE: CASE EVENT DATE: 20151024
